FAERS Safety Report 23331316 (Version 1)
Quarter: 2023Q4

REPORT INFORMATION
  Report Type: Spontaneous
  Country: PL (occurrence: PL)
  Receive Date: 20231222
  Receipt Date: 20231222
  Transmission Date: 20240110
  Serious: Yes (Other)
  Sender: FDA-Public Use
  Company Number: PL-PERRIGO-23PL013923

PATIENT
  Age: 29 Year
  Sex: Male

DRUGS (1)
  1. MINOXIDIL [Suspect]
     Active Substance: MINOXIDIL
     Indication: Alopecia
     Dosage: ONCE OR TWICE A DAY
     Route: 065
     Dates: start: 20231106

REACTIONS (20)
  - Impaired work ability [Recovering/Resolving]
  - Panic attack [Recovered/Resolved]
  - Salivary hypersecretion [Recovering/Resolving]
  - Vision blurred [Recovering/Resolving]
  - Muscular weakness [Recovering/Resolving]
  - Hyperresponsive to stimuli [Recovering/Resolving]
  - Fear [Recovering/Resolving]
  - Anxiety [Recovering/Resolving]
  - Respiratory rate increased [Recovering/Resolving]
  - Oropharyngeal discomfort [Recovering/Resolving]
  - Discomfort [Recovering/Resolving]
  - Lethargy [Recovering/Resolving]
  - Epistaxis [Recovered/Resolved]
  - Dizziness [Recovering/Resolving]
  - Dyspnoea [Recovering/Resolving]
  - Nausea [Recovering/Resolving]
  - Distractibility [Not Recovered/Not Resolved]
  - Dysphemia [Not Recovered/Not Resolved]
  - Antisocial behaviour [Not Recovered/Not Resolved]
  - Chest pain [Recovering/Resolving]

NARRATIVE: CASE EVENT DATE: 20231201
